FAERS Safety Report 25689606 (Version 1)
Quarter: 2025Q3

REPORT INFORMATION
  Report Type: Spontaneous
  Country: EU (occurrence: EU)
  Receive Date: 20250818
  Receipt Date: 20250818
  Transmission Date: 20251021
  Serious: Yes (Hospitalization)
  Sender: TEVA
  Company Number: None

PATIENT
  Age: 52 Year
  Sex: Female
  Weight: 70 kg

DRUGS (1)
  1. PAROXETINE [Suspect]
     Active Substance: PAROXETINE
     Indication: Depressive symptom
     Dosage: BRAND NAME NOT SPECIFIED ONCE A DAY
     Route: 048
     Dates: start: 20030101

REACTIONS (2)
  - Osteoporosis [Not Recovered/Not Resolved]
  - Hip fracture [Not Recovered/Not Resolved]
